FAERS Safety Report 8044714-3 (Version None)
Quarter: 2012Q1

REPORT INFORMATION
  Report Type: 
  Country: None (occurrence: None)
  Receive Date: 20120113
  Receipt Date: 20120109
  Transmission Date: 20120608
  Serious: Yes (Other)
  Sender: FDA-Public Use
  Company Number: GB-PFIZER INC-2012007750

PATIENT
  Age: 21 Year
  Sex: Male
  Weight: 65 kg

DRUGS (6)
  1. SULFASALAZINE [Suspect]
     Indication: ARTHRITIS
     Dosage: 500 MG, 5 DAILY
     Route: 048
     Dates: start: 20110801, end: 20111101
  2. NAPROXEN [Concomitant]
     Indication: ARTHRITIS
     Dosage: 250 MG, 3X/DAY
     Route: 048
     Dates: start: 20110601, end: 20111201
  3. DEPO-MEDRONE W/ LIDOCAINE [Concomitant]
     Indication: ARTHRITIS
     Dosage: 80 MG/2ML, UNK
     Route: 014
     Dates: start: 20111011
  4. ESCITALOPRAM [Concomitant]
     Indication: DEPRESSION
     Dosage: 10 MG, 1X/DAY
     Route: 048
     Dates: start: 20110801, end: 20111201
  5. LOPERAMIDE [Concomitant]
     Indication: COLOSTOMY
     Dosage: 2 MG, 2X/DAY
     Route: 048
     Dates: start: 20090101
  6. ZOPICLONE [Concomitant]
     Indication: SLEEP DISORDER
     Dosage: 3.75 MG, ONE AT NIGHT AS NEEDED
     Route: 048
     Dates: start: 20090101

REACTIONS (1)
  - LIVER DISORDER [None]
